FAERS Safety Report 13877946 (Version 1)
Quarter: 2017Q3

REPORT INFORMATION
  Report Type: Spontaneous
  Country: US (occurrence: US)
  Receive Date: 20170817
  Receipt Date: 20170817
  Transmission Date: 20171127
  Serious: No
  Sender: FDA-Public Use
  Company Number: GXBR2017US001705

PATIENT
  Sex: Male

DRUGS (2)
  1. BISOPROLOL FUMARATE TABLETS [Suspect]
     Active Substance: BISOPROLOL FUMARATE
     Indication: CARDIAC FAILURE
     Dosage: 1.5 DF, QD (1 DF IN THE MORNING AND 0.5 DF IN THE EVENING)
     Route: 048
  2. BISOPROLOL FUMARATE TABLETS [Suspect]
     Active Substance: BISOPROLOL FUMARATE
     Dosage: 1.5 DF, QD (0.5 DF IN THE MORNING AND 1 DF IN THE EVENING)
     Route: 048

REACTIONS (3)
  - Pain in extremity [Unknown]
  - Hypoaesthesia [Unknown]
  - Dizziness [Unknown]
